FAERS Safety Report 25961733 (Version 1)
Quarter: 2025Q4

REPORT INFORMATION
  Report Type: Other
  Country: GB (occurrence: GB)
  Receive Date: 20251027
  Receipt Date: 20251027
  Transmission Date: 20260117
  Serious: Yes (Other)
  Sender: MACLEODS
  Company Number: None

PATIENT

DRUGS (2)
  1. VARENICLINE [Suspect]
     Active Substance: VARENICLINE
     Indication: Ex-tobacco user
     Dosage: 1MG BD
     Route: 065
  2. RAMIPRIL [Concomitant]
     Active Substance: RAMIPRIL
     Indication: Product used for unknown indication
     Route: 065

REACTIONS (1)
  - Hypertension [Not Recovered/Not Resolved]
